FAERS Safety Report 7737915-2 (Version None)
Quarter: 2011Q3

REPORT INFORMATION
  Report Type: 
  Country: None (occurrence: None)
  Receive Date: 20110908
  Receipt Date: 20110829
  Transmission Date: 20111222
  Serious: Yes (Other)
  Sender: FDA-Public Use
  Company Number: PHEH2011US02038

PATIENT
  Sex: Male

DRUGS (3)
  1. KLONOPIN [Concomitant]
     Dosage: 1 MG, TID
  2. GILENYA [Suspect]
     Indication: RELAPSING-REMITTING MULTIPLE SCLEROSIS
     Dosage: 0.5 MG, DAILY
     Route: 048
     Dates: start: 20110816, end: 20110823
  3. LISINOPRIL [Concomitant]
     Dosage: UNK UKN, UNK

REACTIONS (8)
  - FATIGUE [None]
  - ABDOMINAL PAIN [None]
  - HEART RATE DECREASED [None]
  - BLOOD PRESSURE INCREASED [None]
  - ASTHENIA [None]
  - ABDOMINAL DISCOMFORT [None]
  - DIARRHOEA [None]
  - WHITE BLOOD CELL COUNT DECREASED [None]
